FAERS Safety Report 24218029 (Version 1)
Quarter: 2024Q3

REPORT INFORMATION
  Report Type: Spontaneous
  Country: GB (occurrence: GB)
  Receive Date: 20240816
  Receipt Date: 20240816
  Transmission Date: 20241016
  Serious: Yes (Other)
  Sender: TEVA
  Company Number: None

PATIENT
  Age: 42 Year
  Sex: Female
  Weight: 64 kg

DRUGS (2)
  1. TRIMETHOPRIM [Suspect]
     Active Substance: TRIMETHOPRIM
     Indication: Urinary tract infection
     Route: 065
     Dates: start: 20240514, end: 20240521
  2. FLUCONAZOLE [Concomitant]
     Active Substance: FLUCONAZOLE
     Indication: Adverse drug reaction

REACTIONS (1)
  - Angioedema [Recovered/Resolved]
